FAERS Safety Report 24230129 (Version 1)
Quarter: 2024Q3

REPORT INFORMATION
  Report Type: Spontaneous
  Country: FR (occurrence: FR)
  Receive Date: 20240820
  Receipt Date: 20240820
  Transmission Date: 20241017
  Serious: Yes (Hospitalization)
  Sender: SANDOZ
  Company Number: None

PATIENT
  Age: 15 Year
  Sex: Female
  Weight: 59 kg

DRUGS (5)
  1. ALPRAZOLAM [Suspect]
     Active Substance: ALPRAZOLAM
     Indication: Product used for unknown indication
     Dosage: 0.75 MG IN ONE DAY; 3 TABLETS OF 0.25 MG SCORED TABLET
     Route: 048
  2. ALPRAZOLAM [Suspect]
     Active Substance: ALPRAZOLAM
     Dosage: UNK
     Route: 065
  3. DULOXETINE HYDROCHLORIDE [Suspect]
     Active Substance: DULOXETINE HYDROCHLORIDE
     Indication: Intentional product misuse
     Dosage: 630 MG IN ONE DAY; 21 TABLETS OF 30 MG GASTRO-RESISTANT CAPSULE; 1/D AS PRESCRIBED
     Route: 048
     Dates: start: 20240702, end: 20240702
  4. BROMAZEPAM [Suspect]
     Active Substance: BROMAZEPAM
     Indication: Anxiety
     Dosage: 120 MG IN ONE DAY; 20 TABLETS OF 6 MG; HALF A TABLET,2/D AS PRESCRIBED, TAKING 1 TABLET 3 TIMES A DA
     Route: 048
     Dates: start: 20240702, end: 20240702
  5. PAROXETINE [Concomitant]
     Active Substance: PAROXETINE
     Indication: Product used for unknown indication
     Dosage: UNK; DISCONTINUED AFTER ONE MONTH
     Route: 065
     Dates: end: 20240515

REACTIONS (10)
  - Psychomotor skills impaired [Unknown]
  - Dysarthria [Unknown]
  - Disinhibition [Unknown]
  - Mydriasis [Unknown]
  - Micturition urgency [Unknown]
  - Balance disorder [Unknown]
  - Toxicity to various agents [Recovered/Resolved]
  - Intentional overdose [Recovered/Resolved]
  - Hypersomnia [Unknown]
  - Nightmare [Unknown]

NARRATIVE: CASE EVENT DATE: 20240702
